FAERS Safety Report 10757381 (Version 1)
Quarter: 2015Q1

REPORT INFORMATION
  Report Type: Spontaneous
  Country: GB (occurrence: None)
  Receive Date: 20150130
  Receipt Date: 20150130
  Transmission Date: 20150721
  Serious: Yes (Disabling)
  Sender: FDA-Public Use
  Company Number: CL-608-2015

PATIENT
  Age: 54 Year
  Sex: Female
  Weight: 44 kg

DRUGS (4)
  1. SUMATRIPTAN. [Suspect]
     Active Substance: SUMATRIPTAN
  2. MEBEVERINE [Concomitant]
     Active Substance: MEBEVERINE
  3. CIPROFLOXACIN. [Suspect]
     Active Substance: CIPROFLOXACIN
     Indication: URINARY TRACT INFECTION
     Route: 048
     Dates: start: 20141024, end: 20141028
  4. LANSOPRAZOLE. [Concomitant]
     Active Substance: LANSOPRAZOLE

REACTIONS (16)
  - Blood pressure fluctuation [None]
  - Muscle atrophy [None]
  - Asthenia [None]
  - Muscle spasticity [None]
  - Joint crepitation [None]
  - Neuropathy peripheral [None]
  - Hypoaesthesia [None]
  - Fatigue [None]
  - Arthralgia [None]
  - Tinnitus [None]
  - Tremor [None]
  - Weight decreased [None]
  - Decreased appetite [None]
  - Burning sensation [None]
  - Heart rate increased [None]
  - Paraesthesia [None]

NARRATIVE: CASE EVENT DATE: 20141025
